FAERS Safety Report 6527241-1 (Version None)
Quarter: 2009Q4

REPORT INFORMATION
  Report Type: 
  Country: None (occurrence: None)
  Receive Date: 20091230
  Receipt Date: 20091222
  Transmission Date: 20100525
  Serious: Yes (Other)
  Sender: FDA-Public Use
  Company Number: SPV1-2009-02207

PATIENT
  Age: 47 Year
  Sex: Female

DRUGS (5)
  1. XAGRID (ANAGRELIDE HYDROCHLORIDE) CAPSULE [Suspect]
     Indication: ESSENTIAL THROMBOCYTHAEMIA
     Dosage: 1 MG, 1X/DAY:QD, ORAL
     Route: 048
     Dates: start: 20090527, end: 20090620
  2. ONCO-CARBIDE (HYDROXYCARBAMIDE) CAPSULE [Concomitant]
  3. ASPIRINETTA (ACETYLSALICYLIC ACID) TABLET [Concomitant]
  4. ACIDO FOLICO (FOLIC ACID) TABLET [Concomitant]
  5. BENEXOL  /00176001/ (CYANOCOBALAMIN, PYRIDOXINE HYDROCHLORIDE, THIAMIN [Concomitant]

REACTIONS (6)
  - CONFUSIONAL STATE [None]
  - MICROANGIOPATHY [None]
  - MOOD ALTERED [None]
  - NUCLEAR MAGNETIC RESONANCE IMAGING BRAIN ABNORMAL [None]
  - POVERTY OF SPEECH [None]
  - WEIGHT DECREASED [None]
